FAERS Safety Report 5422292-2 (Version None)
Quarter: 2007Q3

REPORT INFORMATION
  Report Type: 
  Country: None (occurrence: None)
  Receive Date: 20070822
  Receipt Date: 20070815
  Transmission Date: 20080115
  Serious: Yes (Death)
  Sender: FDA-Public Use
  Company Number: AU-AVENTIS-200716451GDDC

PATIENT
  Age: 75 Year
  Sex: Male

DRUGS (6)
  1. LANTUS [Suspect]
     Route: 058
     Dates: start: 20070604
  2. AUTOPEN INSULIN INJECTION PEN [Suspect]
  3. RISPERDAL [Concomitant]
     Indication: AGITATION
     Route: 048
     Dates: start: 20070703, end: 20070705
  4. MORPHINE SULFATE [Concomitant]
     Dosage: DOSE: 10-60
     Dates: start: 20070703, end: 20070708
  5. SERENACE [Concomitant]
     Dates: start: 20070703, end: 20070708
  6. MAXOLON [Concomitant]
     Dosage: DOSE: 10-20
     Dates: start: 20070703, end: 20070708

REACTIONS (1)
  - BILE DUCT CANCER [None]
